FAERS Safety Report 16321959 (Version 1)
Quarter: 2019Q2

REPORT INFORMATION
  Report Type: Report from Study
  Country: ZA (occurrence: ZA)
  Receive Date: 20190516
  Receipt Date: 20190516
  Transmission Date: 20190711
  Serious: Yes (Hospitalization)
  Sender: FDA-Public Use
  Company Number: ZA-SA-2019SA128844

PATIENT
  Age: 50 Year
  Sex: Female

DRUGS (2)
  1. OPTISULIN (INSULIN GLARGINE) [Suspect]
     Active Substance: INSULIN GLARGINE
     Dosage: BED TIME-80 UNITS, HS
     Dates: start: 20190502
  2. INSULIN GLULISINE [Suspect]
     Active Substance: INSULIN GLULISINE
     Dosage: BEFORE SUPPER-30 UNITS, BEFORE LUNCH-30 UNITS,BEFORE BREAKFAST-30 UNITS,  TID
     Dates: start: 20190128

REACTIONS (1)
  - Asthma [Not Recovered/Not Resolved]

NARRATIVE: CASE EVENT DATE: 20190503
